FAERS Safety Report 19940857 (Version 4)
Quarter: 2021Q4

REPORT INFORMATION
  Report Type: Spontaneous
  Country: IQ (occurrence: IQ)
  Receive Date: 20211012
  Receipt Date: 20211210
  Transmission Date: 20220303
  Serious: Yes (Death, Other)
  Sender: FDA-Public Use
  Company Number: IQ-SA-SAC20210921000460

PATIENT
  Sex: Male
  Weight: 16 kg

DRUGS (2)
  1. ALDURAZYME [Suspect]
     Active Substance: LARONIDASE
     Dosage: 600 IU, QW
     Route: 065
     Dates: start: 201405, end: 2017
  2. ALDURAZYME [Suspect]
     Active Substance: LARONIDASE
     Dosage: FOR 6 MONTHS
     Dates: start: 2018, end: 2018

REACTIONS (4)
  - Cardiac arrest [Fatal]
  - Condition aggravated [Fatal]
  - Fatigue [Fatal]
  - Dyspnoea [Fatal]

NARRATIVE: CASE EVENT DATE: 20210101
